FAERS Safety Report 14355071 (Version 1)
Quarter: 2018Q1

REPORT INFORMATION
  Report Type: Spontaneous
  Country: US (occurrence: US)
  Receive Date: 20180104
  Receipt Date: 20180104
  Transmission Date: 20180509
  Serious: Yes (Death)
  Sender: FDA-Public Use
  Company Number: None

PATIENT
  Age: 70 Year
  Sex: Male
  Weight: 99.9 kg

DRUGS (22)
  1. ZYTIGA [Suspect]
     Active Substance: ABIRATERONE ACETATE
     Indication: PROSTATE CANCER
     Route: 048
     Dates: start: 20171208, end: 20171227
  2. BICALUTAMIDE. [Concomitant]
     Active Substance: BICALUTAMIDE
  3. BRILINTA [Concomitant]
     Active Substance: TICAGRELOR
  4. GABAPENTIN. [Concomitant]
     Active Substance: GABAPENTIN
  5. HCTZ [Concomitant]
     Active Substance: HYDROCHLOROTHIAZIDE
  6. ISOSORBIDE MONO ER [Concomitant]
  7. LANTUS [Concomitant]
     Active Substance: INSULIN GLARGINE
  8. RANEXA [Concomitant]
     Active Substance: RANOLAZINE
  9. VITAMIN D [Concomitant]
     Active Substance: CHOLECALCIFEROL
  10. COLACE [Concomitant]
     Active Substance: DOCUSATE SODIUM
  11. COREG CR [Concomitant]
     Active Substance: CARVEDILOL PHOSPHATE
  12. ONDANSETRON [Concomitant]
     Active Substance: ONDANSETRON
  13. VALSARTAN. [Concomitant]
     Active Substance: VALSARTAN
  14. CALCIUM [Concomitant]
     Active Substance: CALCIUM
  15. PE RCOCET [Concomitant]
  16. HUMULIN N [Concomitant]
     Active Substance: INSULIN HUMAN
  17. PRAVASTATIN. [Concomitant]
     Active Substance: PRAVASTATIN
  18. FAMOTIDINE. [Concomitant]
     Active Substance: FAMOTIDINE
  19. METFORMIN [Concomitant]
     Active Substance: METFORMIN HYDROCHLORIDE
  20. ASPIRIN. [Concomitant]
     Active Substance: ASPIRIN
  21. BISACODYL EC [Concomitant]
     Active Substance: BISACODYL
  22. PREDNISONE. [Concomitant]
     Active Substance: PREDNISONE

REACTIONS (1)
  - Death [None]

NARRATIVE: CASE EVENT DATE: 20171227
